FAERS Safety Report 7438268-X (Version None)
Quarter: 2011Q2

REPORT INFORMATION
  Report Type: 
  Country: None (occurrence: None)
  Receive Date: 20110426
  Receipt Date: 20110329
  Transmission Date: 20111010
  Serious: Yes (Other)
  Sender: FDA-Public Use
  Company Number: US-BAYER-201033732NA

PATIENT
  Age: 41 Year
  Sex: Female
  Weight: 63 kg

DRUGS (4)
  1. LIPITOR [Concomitant]
     Dosage: 20 MG, UNK
     Route: 048
     Dates: start: 20050101
  2. TRICOR [Concomitant]
  3. ZYRTEC [Concomitant]
  4. YASMIN [Suspect]
     Indication: PRODUCT USED FOR UNKNOWN INDICATION
     Route: 048
     Dates: start: 20050101

REACTIONS (1)
  - DEEP VEIN THROMBOSIS [None]
